FAERS Safety Report 9276026 (Version 1)
Quarter: 2013Q2

REPORT INFORMATION
  Report Type: Spontaneous
  Country: US (occurrence: US)
  Receive Date: 20130507
  Receipt Date: 20130507
  Transmission Date: 20140414
  Serious: No
  Sender: FDA-Public Use
  Company Number: US-009507513-1305USA001155

PATIENT
  Age: 85 Year
  Sex: Female

DRUGS (3)
  1. NASONEX [Suspect]
     Indication: SEASONAL ALLERGY
     Dosage: 1 SPRAY IN EACH NOSTRIL, TWICE DAILY
     Route: 045
     Dates: start: 2003
  2. HYDROCHLOROTHIAZIDE [Concomitant]
  3. PATANOL [Concomitant]

REACTIONS (3)
  - Hypertension [Recovering/Resolving]
  - Gait disturbance [Recovering/Resolving]
  - Somnolence [Recovering/Resolving]
